FAERS Safety Report 8891182 (Version 1)
Quarter: 2012Q4

REPORT INFORMATION
  Report Type: 
  Country: US (occurrence: US)
  Receive Date: 20121107
  Receipt Date: 20121107
  Transmission Date: 20130627
  Serious: No
  Sender: FDA-Public Use
  Company Number: US-B.I. PHARMACEUTICALS,INC./RIDGEFIELD-2012-BP-27181BP

PATIENT
  Age: 68 None
  Sex: Female
  Weight: 84 kg

DRUGS (3)
  1. SPIRIVA [Suspect]
     Indication: EMPHYSEMA
     Dosage: 18 mcg
     Route: 055
     Dates: start: 201006
  2. SPIRIVA [Suspect]
     Dosage: 64 mcg
     Route: 055
     Dates: start: 20121102, end: 20121102
  3. LEVOTHYROXINE [Concomitant]
     Indication: HYPOTHYROIDISM
     Dosage: 75 mcg
     Route: 048
     Dates: start: 201002

REACTIONS (3)
  - Dysuria [Not Recovered/Not Resolved]
  - Overdose [Recovered/Resolved]
  - Product quality issue [Recovered/Resolved]
